FAERS Safety Report 8264851-8 (Version None)
Quarter: 2012Q2

REPORT INFORMATION
  Report Type: 
  Country: None (occurrence: None)
  Receive Date: 20120406
  Receipt Date: 20120328
  Transmission Date: 20120825
  Serious: Yes (Other)
  Sender: FDA-Public Use
  Company Number: DE-JNJFOC-20111005117

PATIENT
  Age: 29 Year
  Sex: Female

DRUGS (3)
  1. PREDNISONE [Concomitant]
     Indication: COLITIS ULCERATIVE
     Dates: start: 20111001
  2. INFLIXIMAB, RECOMBINANT [Suspect]
     Indication: COLITIS ULCERATIVE
     Dosage: 1ST INFUSION ^ABOUT 6 WEEKS AGO^
     Route: 042
     Dates: start: 20110901
  3. AZATHIOPRINE [Concomitant]
     Indication: COLITIS ULCERATIVE
     Dates: start: 20111001

REACTIONS (2)
  - MATERNAL EXPOSURE DURING PREGNANCY [None]
  - ABORTION SPONTANEOUS [None]
